FAERS Safety Report 24963769 (Version 1)
Quarter: 2025Q1

REPORT INFORMATION
  Report Type: Report from Study
  Country: CA (occurrence: CA)
  Receive Date: 20250213
  Receipt Date: 20250213
  Transmission Date: 20250409
  Serious: Yes (Other)
  Sender: TAKEDA
  Company Number: CA-TAKEDA-2025TUS003302

PATIENT
  Age: 10 Year
  Sex: Female

DRUGS (2)
  1. MARALIXIBAT CHLORIDE [Suspect]
     Active Substance: MARALIXIBAT CHLORIDE
     Indication: Alagille syndrome
     Dosage: 0.7 MILLILITER, QD
     Dates: start: 20230830
  2. GUANFACINE HYDROCHLORIDE [Suspect]
     Active Substance: GUANFACINE HYDROCHLORIDE
     Indication: Attention deficit hyperactivity disorder

REACTIONS (6)
  - Nephrolithiasis [Unknown]
  - Decreased appetite [Recovered/Resolved]
  - Weight gain poor [Unknown]
  - Nasopharyngitis [Recovered/Resolved]
  - Feeding tube user [Unknown]
  - Increased appetite [Unknown]

NARRATIVE: CASE EVENT DATE: 20240820
